FAERS Safety Report 9169523 (Version 1)
Quarter: 2013Q1

REPORT INFORMATION
  Report Type: Spontaneous
  Country: BR (occurrence: BR)
  Receive Date: 20130318
  Receipt Date: 20130318
  Transmission Date: 20140127
  Serious: Yes (Other)
  Sender: FDA-Public Use
  Company Number: BR-ASTRAZENECA-2013SE15648

PATIENT
  Age: 18751 Day
  Sex: Female

DRUGS (2)
  1. ATACAND [Suspect]
     Indication: HYPERTENSION
     Route: 048
     Dates: start: 2009, end: 201212
  2. ATACAND HCT [Suspect]
     Indication: HYPERTENSION
     Dosage: 16/12.5 MG, UNKNOWN
     Route: 048
     Dates: start: 201212, end: 20130227

REACTIONS (4)
  - Hypertension [Unknown]
  - Drug ineffective [Unknown]
  - Drug dose omission [Unknown]
  - Blood pressure inadequately controlled [Recovered/Resolved]
